FAERS Safety Report 8218187-1 (Version None)
Quarter: 2012Q1

REPORT INFORMATION
  Report Type: 
  Country: None (occurrence: None)
  Receive Date: 20120319
  Receipt Date: 20120308
  Transmission Date: 20120608
  Serious: Yes (Other)
  Sender: FDA-Public Use
  Company Number: US-SANOFI-AVENTIS-2012SA016017

PATIENT
  Sex: Female

DRUGS (5)
  1. HUMALOG [Suspect]
     Route: 065
  2. APIDRA [Suspect]
     Route: 058
  3. LANTUS [Suspect]
     Route: 058
  4. SOLOSTAR [Suspect]
  5. SOLOSTAR [Suspect]

REACTIONS (3)
  - VISUAL IMPAIRMENT [None]
  - UNEVALUABLE EVENT [None]
  - CATARACT [None]
